FAERS Safety Report 13843253 (Version 2)
Quarter: 2017Q3

REPORT INFORMATION
  Report Type: Spontaneous
  Country: JP (occurrence: JP)
  Receive Date: 20170808
  Receipt Date: 20170901
  Transmission Date: 20171127
  Serious: Yes (Hospitalization, Other)
  Sender: FDA-Public Use
  Company Number: US-ASTRAZENECA-2017SE78217

PATIENT
  Age: 76 Year
  Sex: Female
  Weight: 39 kg

DRUGS (3)
  1. ESOMEPRAZOLE MAGNESIUM. [Suspect]
     Active Substance: ESOMEPRAZOLE MAGNESIUM
     Indication: GASTRIC ULCER
     Route: 048
     Dates: end: 2013
  2. ESOMEPRAZOLE MAGNESIUM. [Suspect]
     Active Substance: ESOMEPRAZOLE MAGNESIUM
     Indication: OESOPHAGEAL DISCOMFORT
     Route: 048
     Dates: end: 2013
  3. OMEPRAL [Suspect]
     Active Substance: OMEPRAZOLE
     Indication: GASTRIC ANTRAL VASCULAR ECTASIA
     Route: 048

REACTIONS (2)
  - Gastric antral vascular ectasia [Recovered/Resolved]
  - Anaemia [Recovered/Resolved]

NARRATIVE: CASE EVENT DATE: 201303
